FAERS Safety Report 5623521-2 (Version None)
Quarter: 2008Q1

REPORT INFORMATION
  Report Type: 
  Country: None (occurrence: None)
  Receive Date: 20080129
  Receipt Date: 20070615
  Transmission Date: 20080703
  Serious: Yes (Other)
  Sender: FDA-Public Use
  Company Number: WAES 0706USA02817

PATIENT
  Age: 42 Year
  Sex: Male

DRUGS (2)
  1. INVANZ [Suspect]
     Indication: CELLULITIS
     Dosage: 1 GM, DAILY, IV
     Route: 042
  2. ZYVOX [Suspect]

REACTIONS (2)
  - CONVULSION [None]
  - DRUG INTERACTION [None]
